FAERS Safety Report 8092939 (Version 2)
Quarter: 2012Q4

REPORT INFORMATION
  Report Type: 
  Country: US (occurrence: US)
  Receive Date: 20110816
  Receipt Date: 20121003
  Transmission Date: 20130627
  Serious: Yes (Other)
  Sender: FDA-Public Use
  Company Number: US-US-EMD SERONO, INC.-7076401

PATIENT
  Age: 52 None
  Sex: Female
  Weight: 49 kg

DRUGS (4)
  1. REBIF [Suspect]
     Indication: MULTIPLE SCLEROSIS
     Route: 058
     Dates: start: 200311
  2. LORICET [Concomitant]
     Indication: MYALGIA
     Dates: start: 2003
  3. VALIUM [Concomitant]
     Indication: ANXIETY
     Dates: start: 2003
  4. UNSPECIFIED MEDICATION [Concomitant]
     Indication: DEPRESSION

REACTIONS (9)
  - Cyst [Unknown]
  - Blood pressure decreased [Recovered/Resolved]
  - Central nervous system lesion [Unknown]
  - Fall [Unknown]
  - Asthenia [Not Recovered/Not Resolved]
  - Injection site discolouration [Not Recovered/Not Resolved]
  - Injection site mass [Not Recovered/Not Resolved]
  - Injection site induration [Not Recovered/Not Resolved]
  - Chills [Not Recovered/Not Resolved]
